FAERS Safety Report 13358385 (Version 1)
Quarter: 2017Q1

REPORT INFORMATION
  Report Type: Report from Study
  Country: BR (occurrence: BR)
  Receive Date: 20170322
  Receipt Date: 20170322
  Transmission Date: 20170429
  Serious: Yes (Other)
  Sender: FDA-Public Use
  Company Number: PHHY2017BR041860

PATIENT
  Sex: Female
  Weight: 62 kg

DRUGS (1)
  1. DIOVAN HCT [Suspect]
     Active Substance: HYDROCHLOROTHIAZIDE\VALSARTAN
     Indication: HYPERTENSION
     Dosage: 1 DF (VALSARTAN 80/HYDROCHLOROTHIAZIDE 12.5 MG), QD
     Route: 048

REACTIONS (4)
  - Blood pressure increased [Unknown]
  - Lung neoplasm [Unknown]
  - Blood pressure fluctuation [Unknown]
  - Blood pressure decreased [Recovering/Resolving]
